FAERS Safety Report 17194016 (Version 1)
Quarter: 2019Q4

REPORT INFORMATION
  Report Type: Report from Study
  Country: US (occurrence: US)
  Receive Date: 20191223
  Receipt Date: 20191223
  Transmission Date: 20200122
  Serious: Yes (Death, Other)
  Sender: FDA-Public Use
  Company Number: US-AUROBINDO-AUR-APL-2019-105014

PATIENT
  Age: 27 Year
  Sex: Female

DRUGS (6)
  1. MORPHINE [Suspect]
     Active Substance: MORPHINE
     Indication: PRODUCT USED FOR UNKNOWN INDICATION
     Dosage: 48 NANOGRAM PER MILLLIITER
     Route: 065
  2. SEPROXETINE [Suspect]
     Active Substance: SEPROXETINE
     Indication: PRODUCT USED FOR UNKNOWN INDICATION
     Dosage: 190 NANOGRAM PER MILLLIITER
     Route: 065
  3. FLUOXETINE [Suspect]
     Active Substance: FLUOXETINE HYDROCHLORIDE
     Indication: PRODUCT USED FOR UNKNOWN INDICATION
     Dosage: 150 NANOGRAM PER MILLLIITER
     Route: 065
  4. LOPERAMIDE [Suspect]
     Active Substance: LOPERAMIDE
     Indication: PRODUCT USED FOR UNKNOWN INDICATION
     Dosage: 450 NANOGRAM PER MILLLIITER
     Route: 065
  5. ALPRAZOLAM. [Suspect]
     Active Substance: ALPRAZOLAM
     Indication: PRODUCT USED FOR UNKNOWN INDICATION
     Dosage: 36 NANOGRAM PER MILLLIITER
     Route: 065
  6. LAMOTRIGINE. [Suspect]
     Active Substance: LAMOTRIGINE
     Indication: PRODUCT USED FOR UNKNOWN INDICATION
     Dosage: 3300 NANOGRAM PER MILLLIITER
     Route: 065

REACTIONS (5)
  - Portal tract inflammation [Fatal]
  - Overdose [Fatal]
  - Bronchiolitis [Fatal]
  - Toxicity to various agents [Fatal]
  - Ulcer [Fatal]
